FAERS Safety Report 4394459-6 (Version None)
Quarter: 2004Q3

REPORT INFORMATION
  Report Type: 
  Country: None (occurrence: None)
  Receive Date: 20040709
  Receipt Date: 20040709
  Transmission Date: 20050211
  Serious: No
  Sender: FDA-Public Use
  Company Number: None

PATIENT
  Age: 34 Year
  Sex: Male
  Weight: 72 kg

DRUGS (1)
  1. AMPICILLIN [Suspect]
     Indication: CELLULITIS
     Dosage: 2 GM Q 6 HOURS IV
     Route: 042
     Dates: start: 20040612, end: 20040707

REACTIONS (4)
  - ABDOMINAL PAIN UPPER [None]
  - PYREXIA [None]
  - RASH [None]
  - VOMITING [None]
